FAERS Safety Report 21513768 (Version 1)
Quarter: 2022Q4

REPORT INFORMATION
  Report Type: Spontaneous
  Country: US (occurrence: US)
  Receive Date: 20221027
  Receipt Date: 20221027
  Transmission Date: 20230113
  Serious: No
  Sender: FDA-Public Use
  Company Number: US-BRISTOL-MYERS SQUIBB COMPANY-2022-127493

PATIENT
  Age: 82 Year
  Sex: Female

DRUGS (1)
  1. REVLIMID [Suspect]
     Active Substance: LENALIDOMIDE
     Indication: Myelodysplastic syndrome
     Dosage: FREQUENCY- TAKE 1 CAPSULE BY MOUTH DAILY FOR 3 WEEKS ON THEN 1 WEEK OFF
     Route: 048

REACTIONS (2)
  - Red blood cell count decreased [Unknown]
  - Diarrhoea [Unknown]
